FAERS Safety Report 6442616-7 (Version None)
Quarter: 2009Q4

REPORT INFORMATION
  Report Type: 
  Country: None (occurrence: None)
  Receive Date: 20091117
  Receipt Date: 20091107
  Transmission Date: 20100525
  Serious: Yes (Other)
  Sender: FDA-Public Use
  Company Number: IN-PFIZER INC-2009295747

PATIENT
  Age: 54 Year
  Sex: Female

DRUGS (1)
  1. AMLODIPINE BESILATE [Suspect]
     Indication: HYPERTENSION
     Dosage: 5 MG, UNK

REACTIONS (3)
  - COLLAGEN DISORDER [None]
  - LICHEN PLANUS [None]
  - SKIN HYPERPIGMENTATION [None]
